FAERS Safety Report 7984603-3 (Version None)
Quarter: 2011Q4

REPORT INFORMATION
  Report Type: 
  Country: None (occurrence: None)
  Receive Date: 20111216
  Receipt Date: 20111213
  Transmission Date: 20120403
  Serious: Yes (Death)
  Sender: FDA-Public Use
  Company Number: US-JNJFOC-20111207069

PATIENT
  Age: 20 Year
  Sex: Male

DRUGS (2)
  1. INVEGA SUSTENNA [Suspect]
     Indication: SCHIZOPHRENIA
     Route: 030
     Dates: start: 20111201, end: 20111201
  2. INVEGA SUSTENNA [Suspect]
     Route: 030
     Dates: start: 20111201, end: 20111201

REACTIONS (1)
  - COMPLETED SUICIDE [None]
